FAERS Safety Report 8268699-X (Version None)
Quarter: 2012Q1

REPORT INFORMATION
  Report Type: 
  Country: None (occurrence: None)
  Receive Date: 20120327
  Receipt Date: 20100112
  Transmission Date: 20120608
  Serious: Yes (Other)
  Sender: FDA-Public Use
  Company Number: PHEH2010US00669

PATIENT
  Age: 58 Year
  Sex: Female

DRUGS (11)
  1. LISINOPRIL AND HYDROCHLOROTHIAZIDE [Concomitant]
  2. GLUCOVANCE [Concomitant]
  3. GLEEVEC [Suspect]
     Indication: MYELOID LEUKAEMIA
     Dosage: 400 MG DAILY, ORAL
     Route: 048
     Dates: start: 20090714
  4. IMODIUM [Concomitant]
  5. HYDREA [Concomitant]
  6. GLIMEPIRIDE [Concomitant]
  7. TOPROL-XL [Concomitant]
  8. STARLIX [Concomitant]
  9. ASPIRIN [Concomitant]
  10. ALLOPURINOL [Concomitant]
  11. JANUVIA [Concomitant]

REACTIONS (7)
  - DIARRHOEA [None]
  - WEIGHT INCREASED [None]
  - NAUSEA [None]
  - MUSCLE SPASMS [None]
  - NEUROPATHY PERIPHERAL [None]
  - VOMITING [None]
  - FLUID RETENTION [None]
